FAERS Safety Report 11568877 (Version 2)
Quarter: 2015Q4

REPORT INFORMATION
  Report Type: Spontaneous
  Country: FR (occurrence: FR)
  Receive Date: 20150929
  Receipt Date: 20151118
  Transmission Date: 20160304
  Serious: Yes (Other)
  Sender: FDA-Public Use
  Company Number: FR-JNJFOC-20150916568

PATIENT
  Sex: Male
  Weight: 52 kg

DRUGS (4)
  1. ZYTIGA [Suspect]
     Active Substance: ABIRATERONE ACETATE
     Indication: METASTASES TO BONE
     Route: 048
     Dates: start: 20150617, end: 20150621
  2. ZYTIGA [Suspect]
     Active Substance: ABIRATERONE ACETATE
     Indication: PROSTATE CANCER METASTATIC
     Route: 048
     Dates: start: 20150617, end: 20150621
  3. GLIVEC [Concomitant]
     Active Substance: IMATINIB MESYLATE
     Indication: GASTRIC NEOPLASM
     Route: 065
     Dates: start: 201312
  4. GLIVEC [Concomitant]
     Active Substance: IMATINIB MESYLATE
     Indication: GASTRIC NEOPLASM
     Route: 065
     Dates: start: 20140212

REACTIONS (3)
  - Diarrhoea [Recovered/Resolved]
  - Vomiting [Recovered/Resolved]
  - Weight decreased [Recovered/Resolved]

NARRATIVE: CASE EVENT DATE: 2015
